FAERS Safety Report 21302947 (Version 2)
Quarter: 2022Q3

REPORT INFORMATION
  Report Type: Report from Study
  Country: AU (occurrence: AU)
  Receive Date: 20220907
  Receipt Date: 20220930
  Transmission Date: 20221026
  Serious: Yes (Other)
  Sender: FDA-Public Use
  Company Number: AU-PFIZER INC-PV202200053993

PATIENT
  Age: 77 Year
  Sex: Male
  Weight: 69.6 kg

DRUGS (3)
  1. ENCORAFENIB [Suspect]
     Active Substance: ENCORAFENIB
     Indication: Non-small cell lung cancer
     Dosage: 300 MG, DAILY
     Route: 048
     Dates: start: 20220113
  2. BINIMETINIB [Suspect]
     Active Substance: BINIMETINIB
     Indication: Non-small cell lung cancer
     Dosage: 45 MG, BID
     Route: 048
     Dates: start: 20220113
  3. SASANLIMAB [Suspect]
     Active Substance: SASANLIMAB
     Indication: Non-small cell lung cancer
     Dosage: 300 MG, EVERY 3 WEEKS
     Route: 058
     Dates: start: 20220113

REACTIONS (1)
  - Ejection fraction decreased [Recovered/Resolved]

NARRATIVE: CASE EVENT DATE: 20220826
